FAERS Safety Report 11536529 (Version 2)
Quarter: 2015Q3

REPORT INFORMATION
  Report Type: Spontaneous
  Country: BE (occurrence: BE)
  Receive Date: 20150922
  Receipt Date: 20150925
  Transmission Date: 20151125
  Serious: Yes (Hospitalization, Other)
  Sender: FDA-Public Use
  Company Number: BE-IPSEN BIOPHARMACEUTICALS, INC.-2015-7373

PATIENT
  Sex: Male

DRUGS (1)
  1. DYSPORT [Suspect]
     Active Substance: ABOBOTULINUMTOXINA
     Indication: BLEPHAROSPASM
     Dosage: 40 UNITS
     Route: 030
     Dates: start: 20150626, end: 20150626

REACTIONS (4)
  - Extraocular muscle paresis [Recovering/Resolving]
  - Dry eye [Not Recovered/Not Resolved]
  - Diplopia [Unknown]
  - Facial paresis [Not Recovered/Not Resolved]

NARRATIVE: CASE EVENT DATE: 201506
